FAERS Safety Report 6251228-X (Version None)
Quarter: 2009Q2

REPORT INFORMATION
  Report Type: 
  Country: None (occurrence: None)
  Receive Date: 20090626
  Receipt Date: 20090618
  Transmission Date: 20091009
  Serious: Yes (Other)
  Sender: FDA-Public Use
  Company Number: MSTR-NO-0906S-0115

PATIENT
  Age: 61 Year
  Sex: Male

DRUGS (2)
  1. METASTRON [Suspect]
     Indication: METASTATIC PAIN
     Dosage: 108 MBQ, SINGLE DOSE, I.V.
     Route: 042
     Dates: start: 20081002, end: 20081002
  2. FLUOROURACIL W/FOLINIC ACID/IRINOTECAN (FOLFIRI) [Concomitant]

REACTIONS (1)
  - ANAEMIA [None]
